FAERS Safety Report 5379318-4 (Version None)
Quarter: 2007Q3

REPORT INFORMATION
  Report Type: 
  Country: None (occurrence: None)
  Receive Date: 20070705
  Receipt Date: 20070626
  Transmission Date: 20080115
  Serious: Yes (Death)
  Sender: FDA-Public Use
  Company Number: DE-ABBOTT-07P-062-0372730-00

PATIENT
  Sex: Female
  Weight: 53 kg

DRUGS (30)
  1. ZEMPLAR [Suspect]
     Indication: HYPERPARATHYROIDISM SECONDARY
     Route: 042
     Dates: start: 20070117, end: 20070225
  2. VITARENAL [Concomitant]
     Indication: DRUG USE FOR UNKNOWN INDICATION
     Route: 048
  3. VIANI DISCUS [Concomitant]
     Indication: DRUG USE FOR UNKNOWN INDICATION
     Route: 055
  4. MOXONIDIN AL [Concomitant]
     Indication: DRUG USE FOR UNKNOWN INDICATION
     Route: 048
  5. RISEDRONATE SODIUM [Concomitant]
     Indication: DRUG USE FOR UNKNOWN INDICATION
     Route: 048
  6. NEXIUM [Concomitant]
     Indication: DRUG USE FOR UNKNOWN INDICATION
     Route: 048
  7. PHOS EX [Concomitant]
     Indication: DRUG USE FOR UNKNOWN INDICATION
     Route: 048
  8. RAMIPRIL [Concomitant]
     Indication: DRUG USE FOR UNKNOWN INDICATION
     Route: 048
  9. AMLODIPINE MESILATE [Concomitant]
     Indication: DRUG USE FOR UNKNOWN INDICATION
     Route: 048
  10. METOPROLOL SUCCINATE [Concomitant]
     Indication: DRUG USE FOR UNKNOWN INDICATION
     Route: 048
  11. LEVOTHYROXINE SODIUM [Concomitant]
     Indication: DRUG USE FOR UNKNOWN INDICATION
     Route: 048
  12. PENTAERITHRITYL TETRANITRATE [Concomitant]
     Indication: DRUG USE FOR UNKNOWN INDICATION
     Route: 048
  13. SALBUTAMOL RATIO [Concomitant]
     Indication: CHRONIC OBSTRUCTIVE PULMONARY DISEASE
     Route: 055
  14. TIMONIL RET [Concomitant]
     Indication: DRUG USE FOR UNKNOWN INDICATION
     Route: 048
  15. NULYTELY [Concomitant]
     Indication: CONSTIPATION
     Route: 048
  16. ENOXAPARIN SODIUM [Concomitant]
     Indication: COAGULOPATHY
     Route: 058
  17. VITAMIN D3 HEVERT [Concomitant]
     Indication: OSTEOPOROSIS
     Route: 048
  18. ZOPICLONE [Concomitant]
     Indication: SLEEP DISORDER
     Route: 048
  19. NITROLINGUAL N SPRAY [Concomitant]
     Indication: ANGINA PECTORIS
  20. SEVELAMER [Concomitant]
     Indication: DRUG USE FOR UNKNOWN INDICATION
     Route: 048
  21. ANTI KALIUM N GRANULAT [Concomitant]
     Indication: DRUG USE FOR UNKNOWN INDICATION
     Route: 048
  22. FLUPIRTINE MALEATE [Concomitant]
     Indication: ANALGESIA
     Route: 048
  23. CIMICIFUGA RACEMOSA ROOT [Concomitant]
     Indication: OSTEOPOROSIS
     Route: 048
  24. METAMIZOLE SODIUM MONOHYDRATE [Concomitant]
     Indication: ANALGESIA
     Route: 048
  25. GABAPENTIN [Concomitant]
     Indication: DRUG USE FOR UNKNOWN INDICATION
     Route: 048
  26. MADOPAR [Concomitant]
     Indication: DRUG USE FOR UNKNOWN INDICATION
     Route: 048
  27. NEO RECORMON [Concomitant]
     Indication: RENAL FAILURE
     Route: 042
  28. LEVOCARNITINE [Concomitant]
     Indication: RENAL FAILURE
     Route: 042
  29. VITAMIN C ROTEXMEDICA [Concomitant]
     Indication: RENAL FAILURE
  30. NEO RECORMON [Concomitant]

REACTIONS (1)
  - VENTRICULAR FIBRILLATION [None]
